FAERS Safety Report 7281647-4 (Version None)
Quarter: 2011Q1

REPORT INFORMATION
  Report Type: 
  Country: None (occurrence: None)
  Receive Date: 20110208
  Receipt Date: 20110127
  Transmission Date: 20110831
  Serious: Yes (Other)
  Sender: FDA-Public Use
  Company Number: US-ELI_LILLY_AND_COMPANY-US201101007167

PATIENT
  Sex: Male

DRUGS (6)
  1. ALTACE [Concomitant]
     Dosage: UNK, UNKNOWN
  2. NEXIUM [Concomitant]
     Dosage: UNK, UNKNOWN
  3. METFORMIN HCL [Concomitant]
     Dosage: UNK, UNKNOWN
  4. CYMBALTA [Suspect]
     Indication: DEPRESSION
     Dosage: 30 MG, DAILY (1/D)
     Dates: start: 20090101
  5. ACTOS [Concomitant]
     Dosage: UNK, UNKNOWN
  6. CYMBALTA [Suspect]
     Dosage: 60 MG, DAILY (1/D)
     Dates: end: 20110117

REACTIONS (27)
  - HAEMORRHAGE [None]
  - AMNESIA [None]
  - ASTHENIA [None]
  - MUSCULOSKELETAL STIFFNESS [None]
  - VOMITING [None]
  - DIZZINESS [None]
  - RESTLESSNESS [None]
  - NAUSEA [None]
  - IRRITABILITY [None]
  - FATIGUE [None]
  - SKIN EXFOLIATION [None]
  - ANXIETY [None]
  - AGGRESSION [None]
  - HOSTILITY [None]
  - CHILLS [None]
  - DRUG INEFFECTIVE [None]
  - PETECHIAE [None]
  - AGITATION [None]
  - DIARRHOEA [None]
  - URINE OUTPUT DECREASED [None]
  - TREMOR [None]
  - COMPULSIONS [None]
  - URINE COLOUR ABNORMAL [None]
  - MOOD ALTERED [None]
  - CONTUSION [None]
  - WEIGHT DECREASED [None]
  - SKIN HAEMORRHAGE [None]
